FAERS Safety Report 20824214 (Version 3)
Quarter: 2022Q2

REPORT INFORMATION
  Report Type: Spontaneous
  Country: US (occurrence: US)
  Receive Date: 20220513
  Receipt Date: 20220530
  Transmission Date: 20220721
  Serious: No
  Sender: FDA-Public Use
  Company Number: US-ORGANON-O2205USA000828

PATIENT
  Age: 30 Year
  Sex: Female
  Weight: 90.703 kg

DRUGS (1)
  1. NEXPLANON [Suspect]
     Active Substance: ETONOGESTREL
     Dosage: 68 MG; 1 IMPLANT IN RIGHT ARM
     Route: 059
     Dates: start: 20200724

REACTIONS (5)
  - Device issue [Not Recovered/Not Resolved]
  - Device deployment issue [Unknown]
  - Complication associated with device [Not Recovered/Not Resolved]
  - Complication of device removal [Not Recovered/Not Resolved]
  - No adverse event [Unknown]

NARRATIVE: CASE EVENT DATE: 20200724
